FAERS Safety Report 5297935-7 (Version None)
Quarter: 2007Q2

REPORT INFORMATION
  Report Type: 
  Country: None (occurrence: None)
  Receive Date: 20070416
  Receipt Date: 20070411
  Transmission Date: 20071010
  Serious: Yes (Other)
  Sender: FDA-Public Use
  Company Number: JP-JPN-A200701305

PATIENT
  Age: 9 Year
  Sex: Female
  Weight: 35 kg

DRUGS (4)
  1. RELENZA [Suspect]
     Dosage: 10MG TWICE PER DAY
     Route: 055
     Dates: start: 20070316, end: 20070316
  2. ASVERIN [Concomitant]
     Indication: INFLUENZA
     Dosage: 50.1MG PER DAY
     Route: 048
     Dates: start: 20070315, end: 20070316
  3. MUCODYNE [Concomitant]
     Indication: INFLUENZA
     Dosage: 801MG PER DAY
     Route: 048
     Dates: start: 20070315, end: 20070316
  4. PERIACTIN [Concomitant]
     Indication: INFLUENZA
     Dosage: 5.01MG PER DAY
     Route: 048
     Dates: start: 20070315, end: 20070316

REACTIONS (4)
  - ABNORMAL BEHAVIOUR [None]
  - AGGRESSION [None]
  - HALLUCINATION [None]
  - RESTLESSNESS [None]
